FAERS Safety Report 8547950-2 (Version None)
Quarter: 2012Q3

REPORT INFORMATION
  Report Type: 
  Country: None (occurrence: None)
  Receive Date: 20120729
  Receipt Date: 20101123
  Transmission Date: 20120928
  Serious: Yes (Hospitalization)
  Sender: FDA-Public Use
  Company Number: US-BAYER-201038478NA

PATIENT
  Age: 20 Year
  Sex: Female
  Weight: 54 kg

DRUGS (18)
  1. DARVOCET [Concomitant]
     Indication: PAIN
  2. ATIVAN [Concomitant]
     Indication: ANXIETY
  3. DIFLOCANEC [Concomitant]
  4. EFFEXOR [Concomitant]
  5. DROSPIRENONE AND ETHINYL ESTRADIOL [Suspect]
     Indication: ACNE
  6. ABILIFY [Concomitant]
     Indication: DEPRESSION
  7. YAZ [Suspect]
     Indication: ACNE
  8. CYCLOBENAZPRINE [Concomitant]
     Indication: PAIN
  9. POTASSIUM [POTASSIUM] [Concomitant]
  10. ATARAX [Concomitant]
  11. TRAMADOL HYDROCHLORIDE [Concomitant]
  12. PROZAC [Concomitant]
  13. YASMIN [Suspect]
     Indication: CONTRACEPTION
     Dosage: UNK
     Dates: start: 20070209, end: 20070610
  14. AMOXIL [Concomitant]
  15. CYMBALTA [Concomitant]
     Indication: DEPRESSION
  16. INDOMETHACIN [Concomitant]
  17. OXYCODONE HCL [Concomitant]
  18. NEURONTIN [Concomitant]

REACTIONS (7)
  - PULMONARY EMBOLISM [None]
  - NAUSEA [None]
  - HYPOAESTHESIA [None]
  - DYSPNOEA [None]
  - LOSS OF CONSCIOUSNESS [None]
  - PALPITATIONS [None]
  - CHEST DISCOMFORT [None]
